FAERS Safety Report 12630644 (Version 2)
Quarter: 2017Q2

REPORT INFORMATION
  Report Type: Spontaneous
  Country: US (occurrence: US)
  Receive Date: 20160808
  Receipt Date: 20170503
  Transmission Date: 20170830
  Serious: No
  Sender: FDA-Public Use
  Company Number: US-PFIZER INC-2016365748

PATIENT
  Age: 59 Year
  Sex: Female

DRUGS (3)
  1. IBRANCE [Suspect]
     Active Substance: PALBOCICLIB
     Dosage: 100 MG, UNK
     Dates: start: 201607
  2. IBRANCE [Suspect]
     Active Substance: PALBOCICLIB
     Dosage: 125 MG, UNK
     Dates: start: 20160708
  3. IBRANCE [Suspect]
     Active Substance: PALBOCICLIB
     Dosage: 125 MG, DAILY FOR 21 OUT OF 28 DAYS
     Dates: start: 20160718

REACTIONS (10)
  - Fatigue [Unknown]
  - Nausea [Not Recovered/Not Resolved]
  - Dizziness [Unknown]
  - Laceration [Recovering/Resolving]
  - Fall [Unknown]
  - Vomiting [Not Recovered/Not Resolved]
  - Ligament sprain [Unknown]
  - Pain [Not Recovered/Not Resolved]
  - White blood cell count decreased [Unknown]
  - Alopecia [Unknown]
